FAERS Safety Report 7351217-8 (Version None)
Quarter: 2011Q1

REPORT INFORMATION
  Report Type: 
  Country: None (occurrence: None)
  Receive Date: 20110314
  Receipt Date: 20110216
  Transmission Date: 20110831
  Serious: No
  Sender: FDA-Public Use
  Company Number: US-B.I. PHARMACEUTICALS,INC./RIDGEFIELD-2011-BP-05979BP

PATIENT
  Age: 81 Year
  Sex: Male

DRUGS (9)
  1. PRADAXA [Suspect]
     Indication: ATRIAL FIBRILLATION
     Dosage: 300 MG
     Route: 048
     Dates: start: 20110210
  2. ALLOPURINOL [Concomitant]
     Indication: GOUT
     Dosage: 200 MG
     Route: 048
  3. DILTIAZEM [Concomitant]
     Indication: HYPERTENSION
     Dosage: 120 MG
     Route: 048
  4. POTASSIUM CHLORIDE [Concomitant]
     Dosage: 20 MEQ
     Route: 048
  5. PREDNISONE [Concomitant]
     Indication: ARTHRITIS
     Dosage: 5 MG
     Route: 048
  6. MULTIVITAMIN + D [Concomitant]
     Indication: PROPHYLAXIS
     Route: 048
  7. OMEPRAZOLE [Concomitant]
     Indication: ULCER
     Dosage: 20 MG
     Route: 048
  8. FUROSEMIDE [Concomitant]
     Indication: FLUID RETENTION
     Dosage: 40 MG
     Route: 048
  9. CHOLESTOFF VITAMINS [Concomitant]
     Indication: PROPHYLAXIS
     Route: 048

REACTIONS (1)
  - CHROMATURIA [None]
